FAERS Safety Report 4762304-2 (Version None)
Quarter: 2005Q3

REPORT INFORMATION
  Report Type: 
  Country: None (occurrence: None)
  Receive Date: 20050907
  Receipt Date: 20050830
  Transmission Date: 20060218
  Serious: Yes (Other)
  Sender: FDA-Public Use
  Company Number: GB-JNJFOC-20050806647

PATIENT
  Age: 45 Year
  Sex: Female
  Weight: 50.9 kg

DRUGS (5)
  1. REMICADE [Suspect]
     Indication: CROHN'S DISEASE
     Route: 042
  2. PARACETAMOL [Concomitant]
     Indication: PAIN
     Route: 048
  3. AZATHIOPRINE [Concomitant]
     Indication: CROHN'S DISEASE
     Dosage: 50-100MG
     Route: 048
  4. CEFUROXIME [Concomitant]
     Indication: ANAL FISTULA
     Route: 042
  5. METRONIDAZOLE [Concomitant]
     Indication: ANAL FISTULA
     Route: 042

REACTIONS (2)
  - COAGULOPATHY [None]
  - LIVER FUNCTION TEST ABNORMAL [None]
